FAERS Safety Report 25952700 (Version 2)
Quarter: 2025Q4

REPORT INFORMATION
  Report Type: Spontaneous
  Country: JP (occurrence: JP)
  Receive Date: 20251023
  Receipt Date: 20251117
  Transmission Date: 20260117
  Serious: Yes (Other)
  Sender: JOHNSON AND JOHNSON
  Company Number: JP-JNJFOC-20251029201

PATIENT
  Age: 7 Decade
  Sex: Female

DRUGS (3)
  1. TREMFYA [Suspect]
     Active Substance: GUSELKUMAB
     Indication: Palmoplantar pustulosis
     Dosage: DOSE UNKNOWN
     Route: 065
  2. TREMFYA [Suspect]
     Active Substance: GUSELKUMAB
  3. TREMFYA [Suspect]
     Active Substance: GUSELKUMAB

REACTIONS (1)
  - Interstitial lung disease [Recovered/Resolved]
